FAERS Safety Report 9817715 (Version 2)
Quarter: 2014Q1

REPORT INFORMATION
  Report Type: Spontaneous
  Country: US (occurrence: US)
  Receive Date: 20140115
  Receipt Date: 20140212
  Transmission Date: 20141002
  Serious: No
  Sender: FDA-Public Use
  Company Number: US-BAYER-2014-006806

PATIENT
  Age: 37 Year
  Sex: Male
  Weight: 104.31 kg

DRUGS (7)
  1. BETASERON [Suspect]
     Dosage: 0.25 MG, QOD
     Route: 058
  2. GABAPENTIN [Concomitant]
     Dosage: 100 MG, UNK
  3. BACLOFEN [Concomitant]
     Dosage: 10 MG, UNK
  4. AMITRIPTYLIN [Concomitant]
     Dosage: 10 MG, UNK
  5. CRESTOR [Concomitant]
     Dosage: 10 MG, UNK
  6. FISH OIL [Concomitant]
  7. ZETIA [Concomitant]
     Dosage: 10 MG, UNK

REACTIONS (4)
  - Gait disturbance [Unknown]
  - Joint range of motion decreased [Unknown]
  - Injection site joint pain [Unknown]
  - Injection site joint warmth [Unknown]
